FAERS Safety Report 15346322 (Version 3)
Quarter: 2021Q1

REPORT INFORMATION
  Report Type: Other
  Country: US (occurrence: US)
  Receive Date: 20180904
  Receipt Date: 20210125
  Transmission Date: 20210419
  Serious: No
  Sender: FDA-Public Use
  Company Number: US-ROCHE-2033611

PATIENT
  Age: 59 Year
  Sex: Female
  Weight: 79.45 kg

DRUGS (11)
  1. PROLIA [Concomitant]
     Active Substance: DENOSUMAB
     Dosage: 60 MG/ML
     Route: 058
     Dates: start: 20200305
  2. BIOTIN [Concomitant]
     Active Substance: BIOTIN
     Route: 048
     Dates: start: 20180906
  3. VITAMIN K2 [Concomitant]
     Active Substance: MENAQUINONE 6
     Dates: start: 20190207
  4. MAGNESIUM OXIDE. [Concomitant]
     Active Substance: MAGNESIUM OXIDE
     Route: 048
     Dates: start: 20190207
  5. OCREVUS [Suspect]
     Active Substance: OCRELIZUMAB
     Route: 042
     Dates: start: 20171127
  6. OCREVUS [Suspect]
     Active Substance: OCRELIZUMAB
     Route: 042
  7. IBUPROFEN. [Concomitant]
     Active Substance: IBUPROFEN
     Route: 048
     Dates: start: 20131121
  8. TECFIDERA [Concomitant]
     Active Substance: DIMETHYL FUMARATE
  9. VITAMIN D3 [Concomitant]
     Active Substance: CHOLECALCIFEROL
     Dates: start: 20120802
  10. OCREVUS [Suspect]
     Active Substance: OCRELIZUMAB
     Indication: RELAPSING-REMITTING MULTIPLE SCLEROSIS
     Dosage: FIRST HALF ?DATE OF TREATMENT: 27/JUL/2020, 19/DEC/2019, 14/JUN/2019, 30/MAY/2018, 11/DEC/2017,
     Route: 042
     Dates: start: 20171127
  11. VITAMIN B3 [Concomitant]
     Active Substance: NIACIN

REACTIONS (6)
  - Fear [Not Recovered/Not Resolved]
  - Muscular weakness [Recovered/Resolved]
  - Asthenia [Not Recovered/Not Resolved]
  - Headache [Recovering/Resolving]
  - Feeling abnormal [Recovered/Resolved]
  - Influenza [Recovered/Resolved]

NARRATIVE: CASE EVENT DATE: 20171127
